FAERS Safety Report 6382165-8 (Version None)
Quarter: 2009Q3

REPORT INFORMATION
  Report Type: 
  Country: None (occurrence: None)
  Receive Date: 20090925
  Receipt Date: 20090915
  Transmission Date: 20100115
  Serious: Yes (Other)
  Sender: FDA-Public Use
  Company Number: DSU-2009-01976

PATIENT
  Age: 60 Year
  Sex: Female
  Weight: 63.05 kg

DRUGS (12)
  1. EVOXAC [Suspect]
     Indication: SJOGREN'S SYNDROME
     Dosage: 90 MG (30 MG, TID), PER ORAL
     Route: 048
     Dates: end: 20090913
  2. FOLIC ACID (FOLIC ACID) (1 MILLIGRAM) (FOLIC ACID) [Concomitant]
  3. METHOTREXATE (METHOTREXATE) (2.5 MILLIGRAM) (METHOTREXATE) [Concomitant]
  4. METROGEL (METRONIDAZOLE) (METRONIDAZOLE) [Concomitant]
  5. REQUIP (ROPINIROLE HYDROCHLORIDE) (1 MILLIGRAM) (ROPINIROLE HYDROCHLOR [Concomitant]
  6. GABITRIL (TIAGABINE HYDROCHLORIDE) (12 MILLIGRAM) (TIAGABINE HYDROCHLO [Concomitant]
  7. ARMOUR THYROID (THYROID) (60 MILLIGRAM) (THYROID) [Concomitant]
  8. CELEBREX (CELECOXIB) (100 MILLIGRAM) (CELECOXIB) [Concomitant]
  9. VIVELLE (ESTRADIOL) (0.05 MILLIGRAM) (ESTRADIOL) [Concomitant]
  10. SINGULAIR (MONTELUKAST) (10 MILLIGRAM) (MONTELUKAST) [Concomitant]
  11. PROVENTIL (SALBUTAMOL SULFATE) (SALBUTAMOL SULFATE) [Concomitant]
  12. ASPIRIN (ACETYLSALICYLIC ACID) (162 MILLIGRAM) (ACETYLSALICYLIC ACID) [Concomitant]

REACTIONS (3)
  - DYSPNOEA [None]
  - HYPERSENSITIVITY [None]
  - UNRESPONSIVE TO STIMULI [None]
